FAERS Safety Report 4770912-8 (Version None)
Quarter: 2005Q3

REPORT INFORMATION
  Report Type: 
  Country: None (occurrence: None)
  Receive Date: 20050914
  Receipt Date: 20050829
  Transmission Date: 20060218
  Serious: Yes (Hospitalization)
  Sender: FDA-Public Use
  Company Number: JP_050807458

PATIENT
  Age: 72 Year
  Sex: Male
  Weight: 70 kg

DRUGS (5)
  1. GEMZAR [Suspect]
     Indication: PANCREATIC CARCINOMA
     Dosage: 200 MG OTHER
     Route: 042
     Dates: start: 20050816, end: 20050816
  2. CLINDAMYCIN HCL [Concomitant]
  3. ROCEPHIN [Concomitant]
  4. MIRACLID            (ULINASTATIN) [Concomitant]
  5. ANTITHROMBIN III [Concomitant]

REACTIONS (4)
  - BILIARY TRACT INFECTION [None]
  - CONDITION AGGRAVATED [None]
  - DISSEMINATED INTRAVASCULAR COAGULATION [None]
  - RASH [None]
